FAERS Safety Report 5657525-0 (Version None)
Quarter: 2008Q1

REPORT INFORMATION
  Report Type: 
  Country: None (occurrence: None)
  Receive Date: 20080310
  Receipt Date: 20080227
  Transmission Date: 20080703
  Serious: Yes (Other)
  Sender: FDA-Public Use
  Company Number: FR-PFIZER INC-2008019346

PATIENT
  Sex: Male

DRUGS (1)
  1. RELPAX [Suspect]

REACTIONS (1)
  - PHLEBITIS [None]
